FAERS Safety Report 9335437 (Version 2)
Quarter: 2013Q3

REPORT INFORMATION
  Report Type: Spontaneous
  Country: US (occurrence: US)
  Receive Date: 20130605
  Receipt Date: 20130718
  Transmission Date: 20140515
  Serious: Yes (Other)
  Sender: FDA-Public Use
  Company Number: US-TEVA-409204USA

PATIENT
  Age: 88 Year
  Sex: Female

DRUGS (3)
  1. AZILECT [Suspect]
     Dosage: .5 MILLIGRAM DAILY;
  2. PLAVIX [Interacting]
  3. ASPIRIN [Interacting]

REACTIONS (2)
  - Melaena [Recovered/Resolved]
  - Drug interaction [Unknown]
